FAERS Safety Report 6278065-4 (Version None)
Quarter: 2009Q3

REPORT INFORMATION
  Report Type: 
  Country: None (occurrence: None)
  Receive Date: 20090722
  Receipt Date: 20090716
  Transmission Date: 20100115
  Serious: Yes (Other)
  Sender: FDA-Public Use
  Company Number: PHHO2009AU07235

PATIENT
  Sex: Female
  Weight: 74.5 kg

DRUGS (6)
  1. ZOLEDRONIC ACID [Suspect]
     Dosage: 4 MG, UNK
     Route: 042
     Dates: start: 20040422, end: 20080417
  2. TAMOXIFEN CITRATE [Concomitant]
     Indication: BREAST CANCER
     Dosage: UNK
     Dates: start: 20041101
  3. CALCIUM [Concomitant]
  4. VITAMIN D [Concomitant]
  5. ARIMIDEX [Concomitant]
  6. ASPIRIN [Concomitant]

REACTIONS (6)
  - BONE DISORDER [None]
  - OSTEONECROSIS [None]
  - PRIMARY SEQUESTRUM [None]
  - SEQUESTRECTOMY [None]
  - TOOTH EXTRACTION [None]
  - TOOTHACHE [None]
